FAERS Safety Report 20988232 (Version 1)
Quarter: 2022Q2

REPORT INFORMATION
  Report Type: Spontaneous
  Country: US (occurrence: US)
  Receive Date: 20220621
  Receipt Date: 20220621
  Transmission Date: 20220721
  Serious: Yes (Other)
  Sender: FDA-Public Use
  Company Number: US-PFIZER INC-PV202200005554

PATIENT
  Age: 66 Year
  Sex: Female

DRUGS (5)
  1. VFEND [Suspect]
     Active Substance: VORICONAZOLE
     Indication: Bronchopulmonary aspergillosis
     Dosage: 1 ORAL (PO) TWICE A DAY (BID) (STRENGTH: 200 MG)
     Route: 048
  2. VFEND [Suspect]
     Active Substance: VORICONAZOLE
     Indication: Fungal infection
     Dosage: 2 ORAL (PO) TWICE A DAY (BID) (STRENGTH: 50 MG)
     Route: 048
  3. VFEND [Suspect]
     Active Substance: VORICONAZOLE
     Indication: Hyponatraemia
     Dosage: 1.5 TABLET, TWICE A DAY (STRENGTH: 200 MG)
     Route: 048
  4. VFEND [Suspect]
     Active Substance: VORICONAZOLE
     Dosage: ORAL (PO) TWICE A DAY (BID) FOR LIFE
     Route: 048
  5. DESLORATADINE [Suspect]
     Active Substance: DESLORATADINE
     Dosage: UNK

REACTIONS (3)
  - Neuropathy peripheral [Unknown]
  - Off label use [Unknown]
  - Incorrect product administration duration [Unknown]
